FAERS Safety Report 8836998 (Version 1)
Quarter: 2012Q4

REPORT INFORMATION
  Report Type: 
  Country: US (occurrence: None)
  Receive Date: 20121011
  Receipt Date: 20121011
  Transmission Date: 20130627
  Serious: No
  Sender: FDA-Public Use
  Company Number: None

PATIENT
  Sex: Female
  Weight: 66 kg

DRUGS (11)
  1. PACLITAXEL (TAXOL) [Suspect]
     Dates: end: 20120927
  2. BEVACIZUMAB [Suspect]
     Dates: end: 20120928
  3. CARBOPLATIN [Suspect]
     Dates: end: 20120928
  4. ATIVAN [Concomitant]
  5. COLACE [Concomitant]
  6. LATANOPROST [Concomitant]
  7. MIRTAZAPINE [Concomitant]
  8. PRILOSEC [Concomitant]
  9. PROCHLORPERAZINE [Concomitant]
  10. SPIRIVA [Concomitant]
  11. ZOFRAN [Concomitant]

REACTIONS (1)
  - Drug hypersensitivity [None]
